FAERS Safety Report 4425289-4 (Version None)
Quarter: 2004Q3

REPORT INFORMATION
  Report Type: 
  Country: None (occurrence: None)
  Receive Date: 20040813
  Receipt Date: 20040804
  Transmission Date: 20050211
  Serious: Yes (Hospitalization)
  Sender: FDA-Public Use
  Company Number: FR-JNJFOC-20031003223

PATIENT
  Age: 42 Year
  Sex: Female

DRUGS (12)
  1. REMICADE [Suspect]
     Route: 042
  2. REMICADE [Suspect]
     Indication: RHEUMATOID ARTHRITIS
     Route: 042
  3. SULFASALAZINE [Concomitant]
     Indication: RHEUMATOID ARTHRITIS
  4. PLAQUENIL [Concomitant]
  5. NOVATREX [Concomitant]
  6. PREDNISONE TAB [Concomitant]
  7. DEROXAT [Concomitant]
  8. FOLIC ACID [Concomitant]
  9. XANAX [Concomitant]
  10. IMOVANE [Concomitant]
  11. RIFAMPIN AND ISONIAZID [Concomitant]
  12. RIFAMPIN AND ISONIAZID [Concomitant]

REACTIONS (6)
  - CRANIAL NEUROPATHY [None]
  - DRUG INEFFECTIVE [None]
  - HEADACHE [None]
  - NAUSEA [None]
  - PYREXIA [None]
  - VERTIGO [None]
